FAERS Safety Report 11375424 (Version 1)
Quarter: 2015Q3

REPORT INFORMATION
  Report Type: Report from Study
  Country: US (occurrence: US)
  Receive Date: 20150813
  Receipt Date: 20150813
  Transmission Date: 20151125
  Serious: Yes (Hospitalization)
  Sender: FDA-Public Use
  Company Number: US-JNJFOC-20150808541

PATIENT
  Sex: Male

DRUGS (3)
  1. IMBRUVICA [Suspect]
     Active Substance: IBRUTINIB
     Indication: LYMPHOMA
     Route: 048
     Dates: start: 20140621
  2. RITUXAN [Concomitant]
     Active Substance: RITUXIMAB
  3. PROCRIT [Concomitant]
     Active Substance: ERYTHROPOIETIN

REACTIONS (3)
  - Off label use [Unknown]
  - Chest pain [Unknown]
  - Hypertension [Unknown]
